FAERS Safety Report 15680165 (Version 1)
Quarter: 2018Q4

REPORT INFORMATION
  Report Type: Spontaneous
  Country: IT (occurrence: IT)
  Receive Date: 20181203
  Receipt Date: 20181203
  Transmission Date: 20190205
  Serious: Yes (Other)
  Sender: FDA-Public Use
  Company Number: IT-TEVA-2018-IT-982787

PATIENT
  Age: 63 Year
  Sex: Male

DRUGS (6)
  1. MESNA. [Concomitant]
     Active Substance: MESNA
     Dosage: 4 CYCLES
     Route: 065
  2. HYDROCHLOROTHIAZIDE. [Concomitant]
     Active Substance: HYDROCHLOROTHIAZIDE
     Indication: HYPERTENSION
     Route: 065
  3. VALSARTAN. [Concomitant]
     Active Substance: VALSARTAN
     Indication: HYPERTENSION
     Route: 065
  4. METFORMIN [Concomitant]
     Active Substance: METFORMIN HYDROCHLORIDE
     Indication: TYPE 2 DIABETES MELLITUS
     Route: 065
  5. EPIRUBICIN [Suspect]
     Active Substance: EPIRUBICIN
     Indication: EPITHELIOID SARCOMA
     Dosage: 4 CYCLES
     Route: 065
  6. IFOSFAMIDE. [Suspect]
     Active Substance: IFOSFAMIDE
     Indication: EPITHELIOID SARCOMA
     Dosage: 4 CYCLES
     Route: 065

REACTIONS (4)
  - Bone marrow toxicity [Unknown]
  - Pancytopenia [Unknown]
  - Klebsiella infection [Recovered/Resolved]
  - Clostridium difficile infection [Recovered/Resolved]
